FAERS Safety Report 8474411-1 (Version None)
Quarter: 2012Q2

REPORT INFORMATION
  Report Type: 
  Country: None (occurrence: None)
  Receive Date: 20120628
  Receipt Date: 20120619
  Transmission Date: 20120825
  Serious: Yes (Other)
  Sender: FDA-Public Use
  Company Number: PHHY2012BR054074

PATIENT
  Age: 69 Year
  Sex: Female

DRUGS (1)
  1. FORMOTEROL FUMARATE [Suspect]
     Indication: ASTHMA
     Dosage: 4 DF (2 CAPSULES ON AN EMPTY STOMACH AND 2 CAPSULES AT NIGHT )
     Dates: start: 20100101

REACTIONS (4)
  - COUGH [None]
  - DYSPNOEA [None]
  - INFLUENZA [None]
  - LUNG NEOPLASM [None]
